FAERS Safety Report 5445458-4 (Version None)
Quarter: 2007Q3

REPORT INFORMATION
  Report Type: 
  Country: None (occurrence: None)
  Receive Date: 20070906
  Receipt Date: 20070904
  Transmission Date: 20080115
  Serious: Yes (Hospitalization)
  Sender: FDA-Public Use
  Company Number: NL-ROXANE LABORATORIES, INC-2007-BP-20443RO

PATIENT
  Age: 66 Year
  Sex: Female

DRUGS (5)
  1. CODEINE SUL TAB [Suspect]
  2. PROPRANOLOL [Suspect]
  3. NORTRIPTYLINE HCL [Suspect]
  4. VALPROIC ACID [Suspect]
  5. CALCIUM CARBONATE [Concomitant]

REACTIONS (20)
  - ACUTE MYOCARDIAL INFARCTION [None]
  - ANAEMIA [None]
  - ANTIDEPRESSANT DRUG LEVEL ABOVE THERAPEUTIC [None]
  - BRADYCARDIA [None]
  - BUNDLE BRANCH BLOCK LEFT [None]
  - BUNDLE BRANCH BLOCK RIGHT [None]
  - COMA [None]
  - DRUG LEVEL BELOW THERAPEUTIC [None]
  - ELECTROCARDIOGRAM ABNORMAL [None]
  - ELECTROCARDIOGRAM QRS COMPLEX PROLONGED [None]
  - HYPOTENSION [None]
  - INFLUENZA LIKE ILLNESS [None]
  - LETHARGY [None]
  - LIVER FUNCTION TEST ABNORMAL [None]
  - NODAL RHYTHM [None]
  - PARESIS [None]
  - PNEUMONIA [None]
  - RENAL FUNCTION TEST ABNORMAL [None]
  - SHOCK [None]
  - UPPER GASTROINTESTINAL HAEMORRHAGE [None]
